FAERS Safety Report 22654150 (Version 6)
Quarter: 2023Q4

REPORT INFORMATION
  Report Type: Report from Study
  Country: US (occurrence: US)
  Receive Date: 20230629
  Receipt Date: 20231214
  Transmission Date: 20240110
  Serious: No
  Sender: FDA-Public Use
  Company Number: US-002147023-NVSC2023US147785

PATIENT
  Sex: Female

DRUGS (1)
  1. KESIMPTA [Suspect]
     Active Substance: OFATUMUMAB
     Indication: Product used for unknown indication
     Dosage: UNK UNK, QMO
     Route: 030

REACTIONS (7)
  - Muscle strain [Unknown]
  - Influenza like illness [Unknown]
  - Back pain [Unknown]
  - Headache [Unknown]
  - Fatigue [Unknown]
  - Urinary tract infection [Unknown]
  - Incorrect route of product administration [Unknown]
